FAERS Safety Report 15210860 (Version 1)
Quarter: 2018Q3

REPORT INFORMATION
  Report Type: Spontaneous
  Country: IN (occurrence: IN)
  Receive Date: 20180728
  Receipt Date: 20180728
  Transmission Date: 20181010
  Serious: Yes (Other)
  Sender: FDA-Public Use
  Company Number: IN-SA-2018SA193183

PATIENT
  Age: 67 Year
  Sex: Female

DRUGS (1)
  1. LANTUS [Suspect]
     Active Substance: INSULIN GLARGINE
     Dosage: 20 DF, QD
     Dates: start: 201702, end: 201703

REACTIONS (4)
  - Productive cough [Unknown]
  - Dyspnoea [Unknown]
  - Gastrooesophageal cancer [Unknown]
  - Gastrooesophageal reflux disease [Unknown]

NARRATIVE: CASE EVENT DATE: 2018
